FAERS Safety Report 6180329-X (Version None)
Quarter: 2009Q2

REPORT INFORMATION
  Report Type: 
  Country: None (occurrence: None)
  Receive Date: 20090504
  Receipt Date: 20090504
  Transmission Date: 20091009
  Serious: Yes (Other)
  Sender: FDA-Public Use
  Company Number: None

PATIENT
  Age: 58 Year
  Sex: Female

DRUGS (2)
  1. RHINOCORT AQ NASAL SPRAY [Suspect]
     Indication: RHINITIS
     Dosage: ONCE-TWICE SPRAYS QD
     Dates: start: 20080101
  2. FLONASE [Suspect]
     Indication: RHINITIS
     Dosage: ONCE-TWICE SPRAYS QD
     Dates: start: 20080101

REACTIONS (2)
  - EPISTAXIS [None]
  - NASAL ULCER [None]
